FAERS Safety Report 8366984-4 (Version None)
Quarter: 2012Q2

REPORT INFORMATION
  Report Type: 
  Country: None (occurrence: None)
  Receive Date: 20120517
  Receipt Date: 20120130
  Transmission Date: 20120825
  Serious: Yes (Other)
  Sender: FDA-Public Use
  Company Number: US-ROCHE-1069766

PATIENT

DRUGS (2)
  1. FOSAMAX [Suspect]
     Indication: OSTEOPOROSIS
     Dates: start: 20050101
  2. BONIVA [Suspect]
     Indication: OSTEOPOROSIS
     Dates: start: 20070401

REACTIONS (1)
  - FEMUR FRACTURE [None]
